FAERS Safety Report 18118899 (Version 1)
Quarter: 2020Q3

REPORT INFORMATION
  Report Type: Spontaneous
  Country: CA (occurrence: CA)
  Receive Date: 20200806
  Receipt Date: 20200806
  Transmission Date: 20201103
  Serious: Yes (Life-Threatening, Hospitalization)
  Sender: FDA-Public Use
  Company Number: CA-PFIZER INC-2020296330

PATIENT
  Age: 77 Year
  Sex: Male

DRUGS (26)
  1. ACETAMINOPHEN. [Concomitant]
     Active Substance: ACETAMINOPHEN
  2. SOLU?CORTEF [Concomitant]
     Active Substance: HYDROCORTISONE SODIUM SUCCINATE
     Route: 030
  3. VASOPRESSIN. [Concomitant]
     Active Substance: VASOPRESSIN
  4. VIMPAT [Concomitant]
     Active Substance: LACOSAMIDE
  5. ZOFRAN [Concomitant]
     Active Substance: ONDANSETRON HYDROCHLORIDE
  6. VANCOMYCIN [Concomitant]
     Active Substance: VANCOMYCIN
  7. ALBUMIN (HUMAN) [Concomitant]
     Active Substance: ALBUMIN HUMAN
     Route: 042
  8. DIPRIVAN [Concomitant]
     Active Substance: PROPOFOL
  9. LEVOPHED [Concomitant]
     Active Substance: NOREPINEPHRINE BITARTRATE
     Route: 042
  10. MAGNESIUM [Concomitant]
     Active Substance: MAGNESIUM
  11. MAXERAN [Concomitant]
     Active Substance: METOCLOPRAMIDE HYDROCHLORIDE
  12. PERIDEX [CHLORHEXIDINE GLUCONATE] [Concomitant]
     Route: 048
  13. THIAMINE. [Concomitant]
     Active Substance: THIAMINE
  14. ASAPHEN [Concomitant]
     Active Substance: ASPIRIN
  15. DILANTIN [Concomitant]
     Active Substance: PHENYTOIN
  16. DOPAMINE HCL [Concomitant]
     Active Substance: DOPAMINE HYDROCHLORIDE
     Route: 042
  17. KEPPRA [Concomitant]
     Active Substance: LEVETIRACETAM
  18. POTASSIUM CHLORIDE. [Concomitant]
     Active Substance: POTASSIUM CHLORIDE
  19. VERSED [Concomitant]
     Active Substance: MIDAZOLAM HYDROCHLORIDE
     Route: 030
  20. HUMULIN R [Concomitant]
     Active Substance: INSULIN HUMAN
  21. PANTOLOC [PANTOPRAZOLE] [Concomitant]
     Active Substance: PANTOPRAZOLE SODIUM
  22. SUBLIMAZE [FENTANYL] [Concomitant]
  23. TAZOCIN [Concomitant]
     Active Substance: PIPERACILLIN SODIUM\TAZOBACTAM SODIUM
     Route: 042
  24. PHENYTOIN SODIUM. [Suspect]
     Active Substance: PHENYTOIN SODIUM
     Indication: EPILEPSY
     Dosage: 200 MG, 4X/DAY (1 EVERY 6 HOURS)
     Route: 042
  25. CRESTOR [Concomitant]
     Active Substance: ROSUVASTATIN CALCIUM
  26. HEPARIN SODIUM. [Concomitant]
     Active Substance: HEPARIN SODIUM

REACTIONS (2)
  - Coma [Unknown]
  - Tremor [Unknown]
